FAERS Safety Report 7756570-9 (Version None)
Quarter: 2011Q3

REPORT INFORMATION
  Report Type: 
  Country: None (occurrence: None)
  Receive Date: 20110916
  Receipt Date: 20110908
  Transmission Date: 20111222
  Serious: Yes (Hospitalization)
  Sender: FDA-Public Use
  Company Number: US-JNJFOC-20100706893

PATIENT
  Sex: Male
  Weight: 12.5 kg

DRUGS (12)
  1. INFLIXIMAB [Suspect]
     Route: 042
     Dates: start: 20091111
  2. PROBIOTICS [Concomitant]
  3. FERROUS SULFATE TAB [Concomitant]
  4. MULTI-VITAMINS [Concomitant]
  5. DEXTRAN INJ [Concomitant]
  6. PREVACID [Concomitant]
  7. INFLIXIMAB [Suspect]
     Indication: CROHN'S DISEASE
     Route: 042
  8. INFLIXIMAB [Suspect]
     Route: 042
     Dates: start: 20101122, end: 20101122
  9. PREDNISONE [Concomitant]
  10. INFLIXIMAB [Suspect]
     Route: 042
     Dates: start: 20100618
  11. MESALAMINE [Concomitant]
     Route: 054
  12. ANTIBIOTICS [Concomitant]
     Indication: INFLAMMATORY BOWEL DISEASE

REACTIONS (1)
  - CROHN'S DISEASE [None]
